FAERS Safety Report 4438952-6 (Version None)
Quarter: 2004Q3

REPORT INFORMATION
  Report Type: 
  Country: None (occurrence: None)
  Receive Date: 20040830
  Receipt Date: 20040813
  Transmission Date: 20050211
  Serious: Yes (Life-Threatening)
  Sender: FDA-Public Use
  Company Number: 2004229288JP

PATIENT
  Age: 18 Year
  Sex: Male

DRUGS (6)
  1. CYTOSAR-U [Suspect]
     Indication: ACUTE MYELOID LEUKAEMIA
     Dosage: SEE IMAGE
     Route: 041
     Dates: start: 19990610, end: 19990611
  2. CYTOSAR-U [Suspect]
     Indication: ACUTE MYELOID LEUKAEMIA
     Dosage: SEE IMAGE
     Route: 041
     Dates: start: 19990612, end: 19990617
  3. DOXORUBICIN HYDROCHLORIDE [Suspect]
     Indication: ACUTE MYELOID LEUKAEMIA
     Dosage: 60 MG, IV DRIP
     Route: 041
     Dates: start: 19990612, end: 19990614
  4. ETOPOSIDE [Suspect]
     Indication: ACUTE MYELOID LEUKAEMIA
     Dosage: 180 MG, IV DRIP
     Route: 041
     Dates: start: 19990615, end: 19990617
  5. MEROPENEM (MEROPENEM) [Suspect]
     Indication: INFECTION
     Dosage: 1 G, IV DRIP
     Route: 041
     Dates: start: 19990610, end: 19990620
  6. ONDANSETRON HCL [Concomitant]

REACTIONS (6)
  - BONE MARROW DEPRESSION [None]
  - DRUG INEFFECTIVE [None]
  - ENTEROCOLITIS [None]
  - EXANTHEM [None]
  - ORAL MUCOSAL DISORDER [None]
  - PYREXIA [None]
